FAERS Safety Report 13463312 (Version 1)
Quarter: 2017Q2

REPORT INFORMATION
  Report Type: Spontaneous
  Country: NL (occurrence: NL)
  Receive Date: 20170420
  Receipt Date: 20170420
  Transmission Date: 20170830
  Serious: Yes (Other)
  Sender: FDA-Public Use
  Company Number: NL-CORDEN PHARMA LATINA S.P.A.-NL-2017COR000088

PATIENT
  Age: 13 Month
  Sex: Male

DRUGS (2)
  1. GENTAMICIN. [Suspect]
     Active Substance: GENTAMICIN
     Indication: PRODUCT USED FOR UNKNOWN INDICATION
     Dosage: UNK
     Route: 042
  2. CARBOPLATIN. [Suspect]
     Active Substance: CARBOPLATIN
     Indication: CONGENITAL RETINOBLASTOMA
     Dosage: 4 COURSES, (CUMULATIVE DOSE: 1805 MG/M2)
     Route: 042

REACTIONS (2)
  - Drug interaction [Unknown]
  - Deafness neurosensory [Unknown]
